FAERS Safety Report 7871346-X (Version None)
Quarter: 2011Q4

REPORT INFORMATION
  Report Type: 
  Country: None (occurrence: None)
  Receive Date: 20111029
  Receipt Date: 20110301
  Transmission Date: 20120403
  Serious: No
  Sender: FDA-Public Use
  Company Number: US-AMGEN-USASP2011011617

PATIENT
  Age: 44 Year
  Sex: Male

DRUGS (12)
  1. PLAQUENIL [Concomitant]
     Dosage: 200 MG, UNK
  2. LANTUS [Concomitant]
  3. HUMALOG [Concomitant]
     Dosage: 100 UNK, UNK
  4. ALLEGRA [Concomitant]
     Dosage: 30 MG, UNK
  5. GLIMEPIRIDE [Concomitant]
     Dosage: 1 MG, UNK
  6. ENBREL [Suspect]
     Indication: PRODUCT USED FOR UNKNOWN INDICATION
     Dosage: 50 MG, UNK
     Route: 058
  7. DIOVAN [Concomitant]
  8. METFORMIN HCL [Concomitant]
     Dosage: 500 MG, UNK
  9. PREDNISONE [Concomitant]
  10. ASPIRIN [Concomitant]
     Dosage: 81 MG, UNK
  11. MULTI TABS [Concomitant]
  12. LOVAZA [Concomitant]
     Dosage: 1 UNK, UNK

REACTIONS (3)
  - PAIN IN EXTREMITY [None]
  - ABASIA [None]
  - INJECTION SITE PAIN [None]
